FAERS Safety Report 8835410 (Version 2)
Quarter: 2012Q4

REPORT INFORMATION
  Report Type: 
  Country: US (occurrence: US)
  Receive Date: 20121011
  Receipt Date: 20121023
  Transmission Date: 20130627
  Serious: Yes (Death)
  Sender: FDA-Public Use
  Company Number: PHEH2012US019960

PATIENT
  Sex: Female
  Weight: 56.24 kg

DRUGS (5)
  1. AFINITOR [Suspect]
     Indication: BREAST CANCER
     Dosage: 5 mg, QD
     Route: 048
     Dates: start: 20120914
  2. VITAMIN D3 [Concomitant]
  3. EXEMESTANE [Concomitant]
  4. METOPROLOL [Concomitant]
  5. VITAMIN C [Concomitant]

REACTIONS (2)
  - Malignant pleural effusion [Fatal]
  - Respiratory failure [Fatal]
